FAERS Safety Report 14969862 (Version 1)
Quarter: 2018Q2

REPORT INFORMATION
  Report Type: Spontaneous
  Country: TW (occurrence: TW)
  Receive Date: 20180604
  Receipt Date: 20180604
  Transmission Date: 20180711
  Serious: Yes (Other)
  Sender: FDA-Public Use
  Company Number: TW-AMGEN-TWNSP2018072971

PATIENT
  Age: 49 Year
  Sex: Female

DRUGS (6)
  1. XGEVA [Suspect]
     Active Substance: DENOSUMAB
     Indication: CARBOHYDRATE ANTIGEN 15-3 INCREASED
     Dosage: UNK Q4WK
     Route: 058
     Dates: start: 20161103, end: 20171018
  2. TAMOXIFEN [Concomitant]
     Active Substance: TAMOXIFEN
     Indication: CARBOHYDRATE ANTIGEN 15-3 INCREASED
     Dosage: UNK
     Dates: start: 20140327, end: 20170301
  3. ZOLADEX [Concomitant]
     Active Substance: GOSERELIN ACETATE
     Dosage: UNK UNK, Q4WK
     Route: 058
     Dates: start: 20161005, end: 20170222
  4. IBRANCE [Suspect]
     Active Substance: PALBOCICLIB
     Indication: BREAST CANCER
     Dosage: 125 MG, CYCLIC (ONCE A DAY (QD) CC DAY -21 EVERY 4 WEEKS
     Route: 065
     Dates: start: 20170906, end: 20170920
  5. FASLODEX [Concomitant]
     Active Substance: FULVESTRANT
     Dosage: (500S)
     Dates: start: 20170628, end: 20171115
  6. FEMARA [Concomitant]
     Active Substance: LETROZOLE
     Dosage: UNK
     Dates: start: 20170315, end: 20170628

REACTIONS (1)
  - Neutrophil count decreased [Recovering/Resolving]

NARRATIVE: CASE EVENT DATE: 20170920
